FAERS Safety Report 23390607 (Version 1)
Quarter: 2024Q1

REPORT INFORMATION
  Report Type: Spontaneous
  Country: US (occurrence: US)
  Receive Date: 20240111
  Receipt Date: 20240111
  Transmission Date: 20240410
  Serious: Yes (Death, Other)
  Sender: FDA-Public Use
  Company Number: US-DRL-USA-LIT/USA/23/0032266

PATIENT
  Age: 7 Decade
  Sex: Female

DRUGS (7)
  1. MINOCYCLINE [Suspect]
     Active Substance: MINOCYCLINE HYDROCHLORIDE
     Indication: Aphthous ulcer
  2. CIPROFLOXACIN [Suspect]
     Active Substance: CIPROFLOXACIN
     Indication: Aphthous ulcer
  3. GENTAMICIN [Suspect]
     Active Substance: GENTAMICIN
     Indication: Aphthous ulcer
  4. NYSTATIN [Suspect]
     Active Substance: NYSTATIN
     Indication: Aphthous ulcer
     Route: 061
  5. FLUCONAZOLE [Suspect]
     Active Substance: FLUCONAZOLE
     Indication: Aphthous ulcer
     Route: 048
  6. TRIAMCINOLONE [Suspect]
     Active Substance: TRIAMCINOLONE
     Indication: Aphthous ulcer
  7. MUPIROCIN [Suspect]
     Active Substance: MUPIROCIN
     Indication: Aphthous ulcer

REACTIONS (2)
  - Death [Fatal]
  - Drug ineffective for unapproved indication [Unknown]
